FAERS Safety Report 6699575-1 (Version None)
Quarter: 2010Q2

REPORT INFORMATION
  Report Type: 
  Country: None (occurrence: None)
  Receive Date: 20100428
  Receipt Date: 20100426
  Transmission Date: 20101027
  Serious: Yes (Other)
  Sender: FDA-Public Use
  Company Number: US-ASTRAZENECA-2007UW18022

PATIENT
  Age: 15082 Day
  Sex: Male
  Weight: 67.6 kg

DRUGS (10)
  1. SEROQUEL [Suspect]
     Indication: SLEEP DISORDER
     Dosage: 200 MG
     Route: 048
     Dates: start: 20030401, end: 20040901
  2. SEROQUEL [Suspect]
     Indication: ANXIETY
     Dosage: 200 MG
     Route: 048
     Dates: start: 20030401, end: 20040901
  3. SEROQUEL [Suspect]
     Route: 048
     Dates: start: 20030426, end: 20040928
  4. SEROQUEL [Suspect]
     Route: 048
     Dates: start: 20030426, end: 20040928
  5. SEROQUEL [Suspect]
     Dosage: 50 MG AT MORNING, 50 MG AT NOON AND 100 MG AT NIGHT
     Route: 048
     Dates: start: 20040426
  6. SEROQUEL [Suspect]
     Dosage: 50 MG AT MORNING, 50 MG AT NOON AND 100 MG AT NIGHT
     Route: 048
     Dates: start: 20040426
  7. PREVACID [Concomitant]
     Route: 048
     Dates: start: 20040706
  8. MORPHINE [Concomitant]
     Indication: PAIN
     Route: 048
     Dates: start: 20030813
  9. CYMBALTA [Concomitant]
     Indication: PAIN
     Route: 048
     Dates: start: 20041103
  10. HUMALOG [Concomitant]
     Dosage: 100 UNITS/ML PUMP 24 HOURS
     Dates: start: 20040630

REACTIONS (7)
  - DIABETES MELLITUS INADEQUATE CONTROL [None]
  - DIABETIC KETOACIDOSIS [None]
  - DIABETIC NEUROPATHY [None]
  - GALLBLADDER DISORDER [None]
  - NEUROPATHY PERIPHERAL [None]
  - PANCREATITIS ACUTE [None]
  - TYPE 2 DIABETES MELLITUS [None]
